FAERS Safety Report 24647194 (Version 1)
Quarter: 2024Q4

REPORT INFORMATION
  Report Type: Spontaneous
  Country: CN (occurrence: CN)
  Receive Date: 20241121
  Receipt Date: 20241121
  Transmission Date: 20250115
  Serious: Yes (Life-Threatening, Other)
  Sender: PFIZER
  Company Number: CN-PFIZER INC-PV202400150065

PATIENT
  Age: 4 Year
  Sex: Male
  Weight: 16 kg

DRUGS (2)
  1. METHOTREXATE SODIUM [Suspect]
     Active Substance: METHOTREXATE SODIUM
     Indication: Chemotherapy
     Dosage: 1598 MG, 1X/DAY
     Route: 041
     Dates: start: 20240619, end: 20240619
  2. DEXTROSE [Concomitant]
     Active Substance: DEXTROSE MONOHYDRATE
     Indication: Vehicle solution use
     Dosage: 250 ML, 1X/DAY
     Route: 042
     Dates: start: 20240619, end: 20240619

REACTIONS (3)
  - Anal ulcer [Recovered/Resolved with Sequelae]
  - Mouth ulceration [Recovered/Resolved with Sequelae]
  - Oral infection [Unknown]

NARRATIVE: CASE EVENT DATE: 20240619
